FAERS Safety Report 14293750 (Version 6)
Quarter: 2018Q3

REPORT INFORMATION
  Report Type: Report from Study
  Country: GB (occurrence: GB)
  Receive Date: 20171216
  Receipt Date: 20180920
  Transmission Date: 20181010
  Serious: Yes (Other)
  Sender: FDA-Public Use
  Company Number: GB-BRISTOL-MYERS SQUIBB COMPANY-BMS-2017-112312

PATIENT
  Age: 62 Year
  Sex: Female

DRUGS (3)
  1. OMEPRAZOLE. [Concomitant]
     Active Substance: OMEPRAZOLE
     Indication: HIATUS HERNIA
     Dosage: 20 MG, UNK
     Route: 048
  2. ABATACEPT [Suspect]
     Active Substance: ABATACEPT
     Indication: RHEUMATOID ARTHRITIS
     Dosage: 125 MG, QWK
     Route: 058
     Dates: start: 20160515, end: 201801
  3. THYROXINE [Concomitant]
     Active Substance: LEVOTHYROXINE
     Indication: PRODUCT USED FOR UNKNOWN INDICATION
     Route: 065

REACTIONS (10)
  - Abdominal pain [Recovering/Resolving]
  - Influenza [Recovering/Resolving]
  - Cataract [Recovering/Resolving]
  - Abdominal discomfort [Unknown]
  - Back disorder [Unknown]
  - Pain in extremity [Unknown]
  - Pain [Unknown]
  - Malaise [Unknown]
  - Arthropathy [Unknown]
  - Dry skin [Unknown]

NARRATIVE: CASE EVENT DATE: 20180101
